APPROVED DRUG PRODUCT: XYZAL
Active Ingredient: LEVOCETIRIZINE DIHYDROCHLORIDE
Strength: 5MG **Federal Register determination that product was not discontinued or withdrawn for safety or effectiveness reasons**
Dosage Form/Route: TABLET;ORAL
Application: N022064 | Product #001
Applicant: CHATTEM INC DBA SANOFI CONSUMER HEALTHCARE
Approved: May 25, 2007 | RLD: Yes | RS: No | Type: DISCN